FAERS Safety Report 6523561-5 (Version None)
Quarter: 2009Q4

REPORT INFORMATION
  Report Type: 
  Country: None (occurrence: None)
  Receive Date: 20091231
  Receipt Date: 20091221
  Transmission Date: 20100525
  Serious: Yes (Other)
  Sender: FDA-Public Use
  Company Number: PHHY2009IT48709

PATIENT
  Sex: Female

DRUGS (2)
  1. ZOMETA [Suspect]
     Dosage: UNK
     Dates: end: 20080105
  2. RISEDRONATE SODIUM [Suspect]
     Dosage: UNK
     Dates: start: 20060101, end: 20070531

REACTIONS (3)
  - BONE ABSCESS [None]
  - BONE DISORDER [None]
  - OSTEOMYELITIS [None]
